FAERS Safety Report 21865653 (Version 1)
Quarter: 2023Q1

REPORT INFORMATION
  Report Type: Spontaneous
  Country: US (occurrence: None)
  Receive Date: 20230116
  Receipt Date: 20230116
  Transmission Date: 20230417
  Serious: Yes (Hospitalization, Other)
  Sender: FDA-Public Use
  Company Number: US-ROCHE-3259740

PATIENT
  Sex: Female
  Weight: 66.284 kg

DRUGS (2)
  1. ACTEMRA [Suspect]
     Active Substance: TOCILIZUMAB
     Indication: Giant cell arteritis
     Dosage: 162 MG/ 0.9 ML ;ONGOING: YES
     Route: 058
     Dates: start: 202009
  2. ACTEMRA [Suspect]
     Active Substance: TOCILIZUMAB

REACTIONS (2)
  - Rectal haemorrhage [Recovering/Resolving]
  - Colitis ischaemic [Unknown]

NARRATIVE: CASE EVENT DATE: 20230104
